FAERS Safety Report 12534607 (Version 1)
Quarter: 2016Q3

REPORT INFORMATION
  Report Type: Not Available
  Country: US (occurrence: US)
  Receive Date: 20160706
  Receipt Date: 20160706
  Transmission Date: 20161109
  Serious: Yes (Other)
  Sender: FDA-Public Use
  Company Number: US-ANIPHARMA-2016-US-004494

PATIENT
  Age: 67 Year
  Sex: Male

DRUGS (2)
  1. VENLAFAXINE [Concomitant]
     Active Substance: VENLAFAXINE HYDROCHLORIDE
     Dosage: 150 MG DAILY
     Route: 065
  2. VALPROIC ACID (NON-SPECIFIC) [Suspect]
     Active Substance: VALPROIC ACID
     Dosage: 1000 MG DAILY
     Route: 065

REACTIONS (5)
  - Cognitive disorder [Unknown]
  - Dyskinesia [Unknown]
  - Normal pressure hydrocephalus [Unknown]
  - Urinary incontinence [Recovered/Resolved]
  - Gait disturbance [Unknown]
